FAERS Safety Report 10090876 (Version 1)
Quarter: 2014Q2

REPORT INFORMATION
  Report Type: Spontaneous
  Country: US (occurrence: US)
  Receive Date: 20140421
  Receipt Date: 20140421
  Transmission Date: 20141212
  Serious: No
  Sender: FDA-Public Use
  Company Number: US-TEVA-476824USA

PATIENT
  Age: 35 Year
  Sex: Female
  Weight: 62.2 kg

DRUGS (3)
  1. PARAGARD 380A [Suspect]
     Indication: CONTRACEPTION
     Route: 015
     Dates: start: 20120530, end: 20140326
  2. SYNTHROID [Concomitant]
     Indication: THYROID DISORDER
  3. VITAMIN D [Concomitant]
     Indication: PRODUCT USED FOR UNKNOWN INDICATION

REACTIONS (2)
  - Metrorrhagia [Unknown]
  - Device expulsion [Recovered/Resolved]
